FAERS Safety Report 6974686-1 (Version None)
Quarter: 2010Q3

REPORT INFORMATION
  Report Type: 
  Country: None (occurrence: None)
  Receive Date: 20100909
  Receipt Date: 20100909
  Transmission Date: 20110219
  Serious: Yes (Other)
  Sender: FDA-Public Use
  Company Number: None

PATIENT
  Age: 54 Year
  Sex: Female
  Weight: 89.8122 kg

DRUGS (1)
  1. DOXYCYCLINE [Suspect]
     Indication: TOOTH INFECTION
     Dosage: ONE DAILY PO (ONCE)
     Route: 048
     Dates: start: 20100830, end: 20100830

REACTIONS (5)
  - DOCUMENTED HYPERSENSITIVITY TO ADMINISTERED DRUG [None]
  - GENITAL PAIN [None]
  - GENITAL SWELLING [None]
  - GLOSSITIS [None]
  - PAIN [None]
